FAERS Safety Report 15074787 (Version 1)
Quarter: 2018Q2

REPORT INFORMATION
  Report Type: Spontaneous
  Country: US (occurrence: US)
  Receive Date: 20180627
  Receipt Date: 20180627
  Transmission Date: 20180711
  Serious: Yes (Hospitalization, Other)
  Sender: FDA-Public Use
  Company Number: US-SAOL THERAPEUTICS-0500021158

PATIENT
  Sex: Female

DRUGS (3)
  1. BACLOFEN. [Suspect]
     Active Substance: BACLOFEN
     Indication: MUSCLE SPASTICITY
     Dosage: 849.2 ?G, \DAY
     Route: 037
  2. BACLOFEN. [Suspect]
     Active Substance: BACLOFEN
     Indication: CEREBRAL PALSY
     Dosage: 780.3 ?G, \DAY
     Route: 037
  3. BOTOX [Concomitant]
     Active Substance: ONABOTULINUMTOXINA
     Route: 058

REACTIONS (7)
  - Muscle spasms [Not Recovered/Not Resolved]
  - Complication associated with device [Recovered/Resolved]
  - Drug withdrawal syndrome [Unknown]
  - Device failure [Recovered/Resolved]
  - Drug ineffective [Recovered/Resolved]
  - Pain [Unknown]
  - Excessive granulation tissue [Unknown]

NARRATIVE: CASE EVENT DATE: 2009
